FAERS Safety Report 22103471 (Version 1)
Quarter: 2023Q1

REPORT INFORMATION
  Report Type: Report from Study
  Country: US (occurrence: US)
  Receive Date: 20230316
  Receipt Date: 20230316
  Transmission Date: 20230417
  Serious: Yes (Other)
  Sender: FDA-Public Use
  Company Number: US-TAKEDA-2023TUS026722

PATIENT
  Sex: Female

DRUGS (1)
  1. LANADELUMAB [Suspect]
     Active Substance: LANADELUMAB
     Indication: Immunodeficiency common variable
     Dosage: 300 MILLIGRAM, Q2WEEKS
     Route: 058
     Dates: start: 202302

REACTIONS (3)
  - Loss of consciousness [Unknown]
  - Tremor [Unknown]
  - Blood pressure decreased [Unknown]
